FAERS Safety Report 7915980-7 (Version None)
Quarter: 2011Q4

REPORT INFORMATION
  Report Type: 
  Country: None (occurrence: None)
  Receive Date: 20111115
  Receipt Date: 20111031
  Transmission Date: 20120403
  Serious: Yes (Hospitalization)
  Sender: FDA-Public Use
  Company Number: US-ARROW GEN-2011-18953

PATIENT
  Age: 11 Year
  Sex: Male

DRUGS (2)
  1. MYCOPHENOLATE MEFETIL [Suspect]
     Indication: LIVER TRANSPLANT
     Dosage: UNK
  2. TACROLIMUS [Suspect]
     Indication: LIVER TRANSPLANT
     Dosage: TROUGH  LEVEL 2.5 - 13 UG/L

REACTIONS (3)
  - OSMOTIC DEMYELINATION SYNDROME [None]
  - DIARRHOEA [None]
  - DEMYELINATION [None]
